FAERS Safety Report 16798994 (Version 1)
Quarter: 2019Q3

REPORT INFORMATION
  Report Type: Spontaneous
  Country: US (occurrence: US)
  Receive Date: 20190912
  Receipt Date: 20190912
  Transmission Date: 20191005
  Serious: No
  Sender: FDA-Public Use
  Company Number: US-AMGEN-USASP2019146189

PATIENT
  Sex: Female

DRUGS (11)
  1. PLAVIX [Concomitant]
     Active Substance: CLOPIDOGREL BISULFATE
     Dosage: 75 MILLIGRAM
  2. GLIMEPIRIDE. [Concomitant]
     Active Substance: GLIMEPIRIDE
     Dosage: 4 MILLIGRAM
  3. METOPROLOL SUCCINATE. [Concomitant]
     Active Substance: METOPROLOL SUCCINATE
     Dosage: 25 MILLIGRAM
  4. REPATHA [Concomitant]
     Active Substance: EVOLOCUMAB
     Indication: PRODUCT USED FOR UNKNOWN INDICATION
     Dosage: 140 MILLIGRAM PER MILLILITRE
     Route: 065
  5. CALCIUM [Concomitant]
     Active Substance: CALCIUM
     Dosage: 600 MILLIGRAM
  6. FOSAMAX [Concomitant]
     Active Substance: ALENDRONATE SODIUM
     Dosage: 75 MILLIGRAM
  7. VITAMIN D [COLECALCIFEROL] [Concomitant]
     Active Substance: CHOLECALCIFEROL
     Dosage: 2000 UNITS
  8. ENBREL [Suspect]
     Active Substance: ETANERCEPT
     Indication: RHEUMATOID ARTHRITIS
     Dosage: 50 MILLIGRAM, QWK
     Route: 058
  9. CHLORTHALIDONE. [Concomitant]
     Active Substance: CHLORTHALIDONE
     Dosage: 25 MILLIGRAM
  10. LOSARTAN POTASSIUM. [Concomitant]
     Active Substance: LOSARTAN POTASSIUM
     Dosage: 100 MILLIGRAM
  11. TRESIBA [Concomitant]
     Active Substance: INSULIN DEGLUDEC
     Dosage: 100 UNIT/ML

REACTIONS (5)
  - Pain in extremity [Not Recovered/Not Resolved]
  - Arthralgia [Not Recovered/Not Resolved]
  - Drug ineffective [Not Recovered/Not Resolved]
  - Blood glucose increased [Not Recovered/Not Resolved]
  - Pain [Not Recovered/Not Resolved]

NARRATIVE: CASE EVENT DATE: 2019
